FAERS Safety Report 4922221-1 (Version None)
Quarter: 2006Q1

REPORT INFORMATION
  Report Type: 
  Country: None (occurrence: None)
  Receive Date: 20060224
  Receipt Date: 20051018
  Transmission Date: 20060701
  Serious: Yes (Hospitalization, Disabling)
  Sender: FDA-Public Use
  Company Number: US-MERCK-0510USA07811

PATIENT
  Age: 73 Year
  Sex: Female
  Weight: 93 kg

DRUGS (9)
  1. VIOXX [Suspect]
     Indication: ARTHRALGIA
     Route: 048
     Dates: start: 20011001, end: 20020801
  2. VIOXX [Suspect]
     Route: 048
     Dates: start: 20011001, end: 20020801
  3. VIOXX [Suspect]
     Route: 048
     Dates: start: 20030601, end: 20040801
  4. VIOXX [Suspect]
     Route: 048
     Dates: start: 20030601, end: 20040801
  5. VIOXX [Suspect]
     Route: 048
     Dates: start: 20011001, end: 20020801
  6. VIOXX [Suspect]
     Route: 048
     Dates: start: 20011001, end: 20020801
  7. VIOXX [Suspect]
     Route: 048
     Dates: start: 20030601, end: 20040801
  8. VIOXX [Suspect]
     Route: 048
     Dates: start: 20030601, end: 20040801
  9. TYLENOL ARTHRITIS EXTENDED RELIEF [Concomitant]
     Route: 065

REACTIONS (17)
  - ABDOMINAL PAIN UPPER [None]
  - ANAEMIA OF CHRONIC DISEASE [None]
  - BLOOD BILIRUBIN INCREASED [None]
  - CARDIAC MURMUR [None]
  - CEREBROVASCULAR ACCIDENT [None]
  - CHEST PAIN [None]
  - CHOLANGITIS SUPPURATIVE [None]
  - CHOLECYSTITIS ACUTE [None]
  - DEHYDRATION [None]
  - DEMENTIA [None]
  - DEPRESSION [None]
  - GAIT DISTURBANCE [None]
  - GASTROENTERITIS [None]
  - NAUSEA [None]
  - RENAL FAILURE ACUTE [None]
  - TRANSIENT ISCHAEMIC ATTACK [None]
  - URINARY INCONTINENCE [None]
